FAERS Safety Report 7135505-6 (Version None)
Quarter: 2010Q4

REPORT INFORMATION
  Report Type: 
  Country: None (occurrence: None)
  Receive Date: 20101203
  Receipt Date: 20101122
  Transmission Date: 20110411
  Serious: Yes (Death)
  Sender: FDA-Public Use
  Company Number: ES-ELI_LILLY_AND_COMPANY-ES201011005839

PATIENT
  Sex: Female
  Weight: 83 kg

DRUGS (5)
  1. FORTEO [Suspect]
     Indication: OSTEOPOROSIS
     Dosage: 20 UG, DAILY (1/D)
     Route: 058
     Dates: start: 20091002
  2. CARDYL [Concomitant]
     Indication: HYPERLIPIDAEMIA
     Dosage: 1 D/F, DAILY (1/D)
     Route: 048
  3. LORAZEPAM [Concomitant]
     Indication: INSOMNIA
     Dosage: 1 D/F, DAILY (1/D)
     Route: 048
  4. NATECAL [Concomitant]
     Indication: OSTEOPOROSIS
     Dosage: 1 D/F, DAILY (1/D)
     Route: 048
  5. SERETIDE [Concomitant]
     Indication: ASTHMA
     Dosage: 1 PUFF D/F, DAILY (1/D)
     Route: 055

REACTIONS (1)
  - ACUTE PULMONARY OEDEMA [None]
